FAERS Safety Report 8971585 (Version 1)
Quarter: 2012Q4

REPORT INFORMATION
  Report Type: Report from Study
  Country: US (occurrence: US)
  Receive Date: 20121217
  Receipt Date: 20121217
  Transmission Date: 20130627
  Serious: Yes (Other)
  Sender: FDA-Public Use
  Company Number: US-JNJFOC-20121205902

PATIENT
  Sex: Female

DRUGS (7)
  1. TOPAMAX [Suspect]
     Indication: MIGRAINE PROPHYLAXIS
     Dosage: average daily dose during pregnancy 181 mg
     Route: 048
  2. TOPAMAX [Suspect]
     Indication: EPILEPSY
     Dosage: average daily dose during pregnancy 181 mg
     Route: 048
  3. ZONISAMIDE [Suspect]
     Indication: MIGRAINE
     Dosage: average daily doses 288 mg
     Route: 065
  4. ZONISAMIDE [Suspect]
     Indication: EPILEPSY
     Dosage: average daily doses 288 mg
     Route: 065
  5. LAMOTRIGINE [Suspect]
     Indication: AFFECTIVE DISORDER
     Dosage: average daily doses 293 mg
     Route: 048
  6. LAMOTRIGINE [Suspect]
     Indication: MIGRAINE
     Dosage: average daily doses 293 mg
     Route: 048
  7. LAMOTRIGINE [Suspect]
     Indication: EPILEPSY
     Dosage: average daily doses 293 mg
     Route: 048

REACTIONS (3)
  - Convulsion [Unknown]
  - Premature labour [Recovered/Resolved]
  - Exposure during pregnancy [Recovered/Resolved]
